FAERS Safety Report 24714753 (Version 2)
Quarter: 2025Q3

REPORT INFORMATION
  Report Type: Spontaneous
  Country: US (occurrence: US)
  Receive Date: 20241210
  Receipt Date: 20250803
  Transmission Date: 20251020
  Serious: Yes (Hospitalization, Other)
  Sender: ALEXION PHARMACEUTICALS
  Company Number: US-ASTRAZENECA-202411USA015996US

PATIENT
  Age: 62 Year
  Sex: Male
  Weight: 88.18 kg

DRUGS (5)
  1. EVUSHELD [Suspect]
     Active Substance: CILGAVIMAB\TIXAGEVIMAB
  2. EVUSHELD [Suspect]
     Active Substance: CILGAVIMAB\TIXAGEVIMAB
  3. COVID-19 VACCINE NOS [Suspect]
     Active Substance: COVID-19 VACCINE
     Indication: COVID-19
  4. OCTAGAM IMMUNE GLOBULIN (HUMAN) [Suspect]
     Active Substance: HUMAN IMMUNOGLOBULIN G
  5. ALLOPURINOL [Suspect]
     Active Substance: ALLOPURINOL

REACTIONS (17)
  - COVID-19 [Unknown]
  - Groin pain [Unknown]
  - Pneumonia [Unknown]
  - Rhinovirus infection [Unknown]
  - Lymphadenopathy [Unknown]
  - Chronic lymphocytic leukaemia [Unknown]
  - Hypogammaglobulinaemia [Unknown]
  - Hepatosplenomegaly [Unknown]
  - Pain [Unknown]
  - Vomiting [Unknown]
  - Flushing [Unknown]
  - Rash [Unknown]
  - Nausea [Unknown]
  - Diarrhoea [Unknown]
  - Pruritus [Unknown]
  - Gout [Unknown]
  - Drug ineffective [Unknown]
